FAERS Safety Report 16007248 (Version 1)
Quarter: 2019Q1

REPORT INFORMATION
  Report Type: Spontaneous
  Country: IT (occurrence: IT)
  Receive Date: 20190226
  Receipt Date: 20190226
  Transmission Date: 20190418
  Serious: Yes (Other)
  Sender: FDA-Public Use
  Company Number: IT-MYLANLABS-2019M1017377

PATIENT
  Age: 96 Year
  Sex: Male

DRUGS (13)
  1. SOLARAZE [Concomitant]
     Active Substance: DICLOFENAC SODIUM
     Dosage: UNK
  2. MIRTAZAPINE. [Concomitant]
     Active Substance: MIRTAZAPINE
     Dosage: UNK
  3. CROMATONFERRO [Concomitant]
     Dosage: UNK
  4. FOLINA                             /00024201/ [Concomitant]
     Active Substance: FOLIC ACID
     Dosage: UNK
  5. MICROSER [Concomitant]
     Active Substance: BETAHISTINE HYDROCHLORIDE
     Dosage: UNK
  6. TACHIDOL [Concomitant]
     Active Substance: ACETAMINOPHEN\CODEINE PHOSPHATE
     Dosage: UNK
  7. SIVASTIN [Concomitant]
     Active Substance: SIMVASTATIN
     Dosage: UNK
  8. TRITTICO [Concomitant]
     Active Substance: TRAZODONE HYDROCHLORIDE
     Dosage: UNK
  9. LASIX [Concomitant]
     Active Substance: FUROSEMIDE
     Dosage: UNK
  10. TICLOPIDINE [Suspect]
     Active Substance: TICLOPIDINE
     Indication: ARTERIAL DISORDER
     Dosage: 250 MILLIGRAM, QD
     Route: 048
  11. CLEXANE [Suspect]
     Active Substance: ENOXAPARIN SODIUM
     Indication: BEDRIDDEN
     Dosage: 4000 KILO-INTERNATIONAL UNIT, QD
     Route: 058
  12. LASITONE [Concomitant]
     Active Substance: FUROSEMIDE\SPIRONOLACTONE
     Dosage: UNK
  13. LANSOPRAZOLE. [Concomitant]
     Active Substance: LANSOPRAZOLE
     Dosage: UNK

REACTIONS (3)
  - Rectal ulcer [Unknown]
  - Anaemia [Unknown]
  - Rectal haemorrhage [Unknown]

NARRATIVE: CASE EVENT DATE: 20180920
